FAERS Safety Report 9270929 (Version 2)
Quarter: 2013Q2

REPORT INFORMATION
  Report Type: Report from Study
  Country: AU (occurrence: AU)
  Receive Date: 20130506
  Receipt Date: 20130520
  Transmission Date: 20140414
  Serious: Yes (Hospitalization)
  Sender: FDA-Public Use
  Company Number: AU-BIOGENIDEC-2013BI038385

PATIENT
  Age: 63 Year
  Sex: Male

DRUGS (7)
  1. TYSABRI [Suspect]
     Indication: RELAPSING-REMITTING MULTIPLE SCLEROSIS
     Dates: start: 20090217, end: 20120914
  2. ZOLOFT [Concomitant]
     Indication: DEPRESSION
  3. COVERSYL [Concomitant]
     Indication: HYPERTENSION
  4. ATORVASTATIN [Concomitant]
     Indication: HYPERLIPIDAEMIA
  5. KRILL OIL [Concomitant]
     Indication: ROUTINE HEALTH MAINTENANCE
  6. VITAMIN B12 [Concomitant]
     Indication: ROUTINE HEALTH MAINTENANCE
  7. BIOMAGNESIUM [Concomitant]
     Indication: ROUTINE HEALTH MAINTENANCE

REACTIONS (1)
  - Prostatomegaly [Recovered/Resolved]
